FAERS Safety Report 23804482 (Version 1)
Quarter: 2024Q2

REPORT INFORMATION
  Report Type: Spontaneous
  Country: US (occurrence: None)
  Receive Date: 20240501
  Receipt Date: 20240501
  Transmission Date: 20240716
  Serious: No
  Sender: FDA-Public Use
  Company Number: None

PATIENT
  Sex: Female

DRUGS (1)
  1. COPAXONE [Suspect]
     Active Substance: GLATIRAMER ACETATE
     Indication: Multiple sclerosis
     Dosage: OTHER FREQUENCY : 3 TIMER PER WK;?
     Route: 058
     Dates: start: 202110

REACTIONS (4)
  - Arthritis [None]
  - Bladder cancer [None]
  - Multiple sclerosis [None]
  - Pain [None]
